FAERS Safety Report 4423454-3 (Version None)
Quarter: 2004Q3

REPORT INFORMATION
  Report Type: 
  Country: None (occurrence: None)
  Receive Date: 20040806
  Receipt Date: 20040725
  Transmission Date: 20050211
  Serious: Yes (Hospitalization)
  Sender: FDA-Public Use
  Company Number: T03-JPN-03066-01

PATIENT
  Age: 65 Year
  Sex: Female

DRUGS (1)
  1. MEMANTINE HCL [Suspect]
     Indication: DEMENTIA ALZHEIMER'S TYPE
     Dosage: 20 MG QD PO
     Route: 048
     Dates: start: 20030611, end: 20030627

REACTIONS (15)
  - BACILLUS INFECTION [None]
  - BLOOD CULTURE POSITIVE [None]
  - BLOOD POTASSIUM INCREASED [None]
  - BLOOD SODIUM INCREASED [None]
  - CONDITION AGGRAVATED [None]
  - DEHYDRATION [None]
  - DEPRESSED LEVEL OF CONSCIOUSNESS [None]
  - HEART RATE INCREASED [None]
  - HEPATIC FUNCTION ABNORMAL [None]
  - NEUROGENIC BLADDER [None]
  - PLATELET COUNT DECREASED [None]
  - POSTRENAL FAILURE [None]
  - RENAL FAILURE [None]
  - URINARY RETENTION [None]
  - URINARY TRACT INFECTION [None]
